FAERS Safety Report 8598954-5 (Version None)
Quarter: 2012Q3

REPORT INFORMATION
  Report Type: 
  Country: None (occurrence: None)
  Receive Date: 20120816
  Receipt Date: 20120719
  Transmission Date: 20120928
  Serious: Yes (Hospitalization)
  Sender: FDA-Public Use
  Company Number: AU-ROCHE-1101334

PATIENT
  Age: 34 Year
  Sex: Female

DRUGS (5)
  1. DIAZEPAM [Suspect]
     Indication: DEPRESSION
     Dates: end: 20120301
  2. LITHIUM CARBONATE [Suspect]
     Indication: DEPRESSION
  3. RISPERIDONE [Suspect]
     Indication: DEPRESSION
     Dates: end: 20120301
  4. ENDEP [Suspect]
     Indication: DEPRESSION
     Dates: start: 20120301, end: 20120303
  5. TEMAZEPAM [Suspect]
     Indication: DEPRESSION
     Dates: end: 20120301

REACTIONS (3)
  - PSYCHOTIC DISORDER [None]
  - DRUG WITHDRAWAL SYNDROME [None]
  - DRUG LEVEL ABOVE THERAPEUTIC [None]
